FAERS Safety Report 15682703 (Version 1)
Quarter: 2018Q4

REPORT INFORMATION
  Report Type: Spontaneous
  Country: JP (occurrence: JP)
  Receive Date: 20181203
  Receipt Date: 20181203
  Transmission Date: 20190205
  Serious: Yes (Hospitalization, Other)
  Sender: FDA-Public Use
  Company Number: JP-AMGEN-JPNSP2018170755

PATIENT
  Age: 75 Year
  Sex: Male
  Weight: 57.5 kg

DRUGS (8)
  1. P-TOL [Concomitant]
     Active Substance: FERRIC OXYHYDROXIDE
     Dosage: 1500 MG, QD
     Route: 048
  2. CALFINA [Concomitant]
     Active Substance: ALFACALCIDOL
     Dosage: 0.25 MUG, QD
     Route: 048
     Dates: start: 20180522
  3. KALIMATE [Concomitant]
     Active Substance: CALCIUM POLYSTYRENE SULFONATE
     Dosage: 1 UNK, QD
     Route: 048
  4. OXAROL [Concomitant]
     Active Substance: MAXACALCITOL
     Dosage: 2.5 MUG, QD
     Route: 065
     Dates: start: 20180623
  5. FOSRENOL [Concomitant]
     Active Substance: LANTHANUM CARBONATE
     Dosage: 2250 MG, QD
     Route: 048
  6. PARSABIV [Suspect]
     Active Substance: ETELCALCETIDE HYDROCHLORIDE
     Indication: HYPERPARATHYROIDISM SECONDARY
     Dosage: 2.5 MG, 3 TIMES/WK
     Route: 041
     Dates: start: 20180814
  7. PRECIPITATED CALCIUM CARBONATE [Concomitant]
     Active Substance: CALCIUM CARBONATE
     Dosage: 1500 MG, QD
     Route: 048
  8. MIRCERA [Concomitant]
     Active Substance: METHOXY POLYETHYLENE GLYCOL-EPOETIN BETA
     Dosage: 75 MUG, Q4WK
     Route: 048

REACTIONS (1)
  - Renal cyst infection [Not Recovered/Not Resolved]

NARRATIVE: CASE EVENT DATE: 20181111
